FAERS Safety Report 10191140 (Version 2)
Quarter: 2014Q2

REPORT INFORMATION
  Report Type: Spontaneous
  Country: FR (occurrence: FR)
  Receive Date: 20140523
  Receipt Date: 20140604
  Transmission Date: 20141212
  Serious: Yes (Other)
  Sender: FDA-Public Use
  Company Number: FR-TEVA-481757ISR

PATIENT
  Age: 48 Year
  Sex: Female
  Weight: 70 kg

DRUGS (1)
  1. KETOPROFENE TEVA 2.5% [Suspect]
     Indication: TENDONITIS
     Dates: start: 20140502, end: 20140507

REACTIONS (3)
  - Thermal burn [Recovering/Resolving]
  - Epidermolysis [Recovering/Resolving]
  - Dermo-hypodermitis [Unknown]
